FAERS Safety Report 9170720 (Version 1)
Quarter: 2013Q1

REPORT INFORMATION
  Report Type: Spontaneous
  Country: US (occurrence: None)
  Receive Date: 20130315
  Receipt Date: 20130315
  Transmission Date: 20140127
  Serious: No
  Sender: FDA-Public Use
  Company Number: None

PATIENT
  Sex: Male

DRUGS (1)
  1. ZELBORAF [Suspect]
     Route: 048
     Dates: start: 20130218, end: 20130314

REACTIONS (5)
  - Rash [None]
  - Blister [None]
  - Eye infection [None]
  - Eye disorder [None]
  - Sunburn [None]
